FAERS Safety Report 17270855 (Version 1)
Quarter: 2020Q1

REPORT INFORMATION
  Report Type: Spontaneous
  Country: US (occurrence: US)
  Receive Date: 20200115
  Receipt Date: 20200115
  Transmission Date: 20200409
  Serious: Yes (Death)
  Sender: FDA-Public Use
  Company Number: US-ROCHE-2522182

PATIENT
  Age: 67 Year
  Sex: Male
  Weight: 59.47 kg

DRUGS (1)
  1. ERIVEDGE [Suspect]
     Active Substance: VISMODEGIB
     Indication: BASAL CELL CARCINOMA
     Dosage: 1 CAPSULE DAILY
     Route: 048
     Dates: start: 20171208

REACTIONS (1)
  - Death [Fatal]

NARRATIVE: CASE EVENT DATE: 20191221
